FAERS Safety Report 4921980-1 (Version None)
Quarter: 2006Q1

REPORT INFORMATION
  Report Type: 
  Country: None (occurrence: None)
  Receive Date: 20060223
  Receipt Date: 20060223
  Transmission Date: 20060701
  Serious: Yes (Hospitalization, Other)
  Sender: FDA-Public Use
  Company Number: None

PATIENT
  Age: 97 Year
  Sex: Female

DRUGS (6)
  1. COUMADIN [Suspect]
     Indication: ATRIAL FIBRILLATION
     Dosage: 3 MG PO QD
     Route: 048
  2. ARICEPT [Concomitant]
  3. LASIX [Concomitant]
  4. DIGOXIN [Concomitant]
  5. POTASSIUM CHLORIDE [Concomitant]
  6. TOPROL-XL [Concomitant]

REACTIONS (3)
  - ANAEMIA [None]
  - CONTUSION [None]
  - GASTROINTESTINAL HAEMORRHAGE [None]
